FAERS Safety Report 4406414-8 (Version None)
Quarter: 2004Q3

REPORT INFORMATION
  Report Type: 
  Country: None (occurrence: None)
  Receive Date: 20040716
  Receipt Date: 20040706
  Transmission Date: 20050211
  Serious: No
  Sender: FDA-Public Use
  Company Number: 2004AP03460

PATIENT
  Sex: Male
  Weight: 90 kg

DRUGS (20)
  1. TENORETIC 100 [Suspect]
     Indication: MIGRAINE
  2. NIFEDICOR [Suspect]
  3. ATORVASTATIN CALCIUM [Suspect]
     Dates: start: 20010101
  4. MIRTAZAPINE [Suspect]
     Dates: start: 20010101
  5. SIMVASTATIN [Concomitant]
  6. METFORMIN HCL [Concomitant]
  7. IRBESARTAN [Concomitant]
  8. BISOPROLOL FUMARATE [Concomitant]
  9. FUROSEMIDE [Concomitant]
  10. CLOMIPRAMINE HCL [Concomitant]
  11. VENLAFAXINE HCL [Concomitant]
  12. CHLORTALIDONE [Concomitant]
  13. GLIQUIDONE [Concomitant]
  14. AMLODIPINE [Concomitant]
  15. LOSARTAN POTASSIUM [Concomitant]
  16. HYDROCHLOROTHIAZIDE [Concomitant]
  17. ALPRAZOLAM [Concomitant]
  18. PRAVASTATIN [Concomitant]
  19. ORLISTAT [Concomitant]
  20. MOXONIDINE [Concomitant]

REACTIONS (4)
  - BLOOD GLUCOSE INCREASED [None]
  - BLOOD TRIGLYCERIDES INCREASED [None]
  - DRUG INTERACTION [None]
  - METABOLIC SYNDROME [None]
